FAERS Safety Report 24732227 (Version 1)
Quarter: 2024Q4

REPORT INFORMATION
  Report Type: Other
  Country: CO (occurrence: CO)
  Receive Date: 20241213
  Receipt Date: 20241213
  Transmission Date: 20250115
  Serious: Yes (Hospitalization)
  Sender: B BRAUN
  Company Number: CO-B.Braun Medical Inc.-2167064

PATIENT
  Age: 17 Year
  Sex: Female

DRUGS (5)
  1. DEXTROSE\MAGNESIUM SULFATE [Suspect]
     Active Substance: DEXTROSE\MAGNESIUM SULFATE
     Indication: Eclampsia
  2. LABETALOL [Suspect]
     Active Substance: LABETALOL
  3. PROPOFOL [Concomitant]
     Active Substance: PROPOFOL
  4. SODIUM NITROPRUSSIDE [Suspect]
     Active Substance: SODIUM NITROPRUSSIDE
  5. MIDAZOLAM [Suspect]
     Active Substance: MIDAZOLAM

REACTIONS (2)
  - Drug ineffective [Unknown]
  - Maternal exposure during pregnancy [Unknown]
